FAERS Safety Report 8780417 (Version 1)
Quarter: 2012Q4

REPORT INFORMATION
  Report Type: Spontaneous
  Country: US (occurrence: None)
  Receive Date: 20120905
  Receipt Date: 20120905
  Transmission Date: 20130627
  Serious: Yes (Hospitalization)
  Sender: FDA-Public Use
  Company Number: None

PATIENT
  Age: 63 Year
  Sex: Male
  Weight: 88.63 kg

DRUGS (8)
  1. PEGASYS [Suspect]
     Route: 058
  2. INDERAL [Concomitant]
  3. PROBIOTIC [Concomitant]
  4. MULTIVITAMIN [Concomitant]
  5. RIBAVIRIN [Concomitant]
  6. PEGASYA [Concomitant]
  7. TELAPREVIR [Concomitant]
  8. PROCRIT [Concomitant]

REACTIONS (4)
  - Hepatic encephalopathy [None]
  - Atrial fibrillation [None]
  - Anaemia [None]
  - Cellulitis [None]
